FAERS Safety Report 6244807-7 (Version None)
Quarter: 2009Q2

REPORT INFORMATION
  Report Type: 
  Country: None (occurrence: None)
  Receive Date: 20090625
  Receipt Date: 20090617
  Transmission Date: 20091009
  Serious: Yes (Hospitalization)
  Sender: FDA-Public Use
  Company Number: US-WATSON-2009-04619

PATIENT
  Sex: Female

DRUGS (2)
  1. QUININE SULFATE (WATSON LABORATORIES) [Suspect]
     Indication: MUSCLE SPASMS
     Dosage: UNK
     Route: 048
     Dates: start: 20061101
  2. QUININE SULFATE (WATSON LABORATORIES) [Suspect]
     Dosage: UNK
     Route: 048
     Dates: start: 20060701

REACTIONS (3)
  - BLOOD DISORDER [None]
  - CEREBROVASCULAR ACCIDENT [None]
  - UNEVALUABLE EVENT [None]
